FAERS Safety Report 9663692 (Version 2)
Quarter: 2013Q4

REPORT INFORMATION
  Report Type: Spontaneous
  Country: LT (occurrence: LT)
  Receive Date: 20131101
  Receipt Date: 20131104
  Transmission Date: 20140711
  Serious: Yes (Death)
  Sender: FDA-Public Use
  Company Number: PHHY2013LT123209

PATIENT
  Age: 72 Year
  Sex: Female

DRUGS (8)
  1. ONBREZ [Suspect]
     Indication: CHRONIC OBSTRUCTIVE PULMONARY DISEASE
     Dosage: 300 UG, QD
  2. SPIRIVA [Suspect]
  3. FLUTICASONE [Suspect]
  4. SERETIDE [Concomitant]
  5. VALSARTAN [Concomitant]
  6. CARVEDILOL [Concomitant]
  7. CORTICOSTEROIDS [Concomitant]
  8. ANTIARRHYTHMIC AGENTS [Concomitant]

REACTIONS (1)
  - Death [Fatal]
